FAERS Safety Report 21184638 (Version 1)
Quarter: 2022Q3

REPORT INFORMATION
  Report Type: Spontaneous
  Country: BR (occurrence: BR)
  Receive Date: 20220808
  Receipt Date: 20220808
  Transmission Date: 20221027
  Serious: Yes (Other)
  Sender: FDA-Public Use
  Company Number: BR-CHEPLA-2022006719

PATIENT
  Age: 31 Year
  Sex: Female

DRUGS (3)
  1. CLONAZEPAM [Suspect]
     Active Substance: CLONAZEPAM
     Dosage: DAILY DOSE: 40 DROP
  2. OXYCODONE [Suspect]
     Active Substance: OXYCODONE
     Dosage: DEPENDENCE
  3. METHADONE [Suspect]
     Active Substance: METHADONE HYDROCHLORIDE
     Dosage: 7.5 MG TWICE A DAY?DAILY DOSE: 15 MILLIGRAM

REACTIONS (6)
  - Depressed level of consciousness [Unknown]
  - Pneumonia [Unknown]
  - Pulmonary embolism [Unknown]
  - Somnolence [Unknown]
  - Apnoea [Unknown]
  - Drug abuse [Unknown]

NARRATIVE: CASE EVENT DATE: 20210301
